FAERS Safety Report 7982651-0 (Version None)
Quarter: 2011Q4

REPORT INFORMATION
  Report Type: 
  Country: None (occurrence: None)
  Receive Date: 20111215
  Receipt Date: 20111213
  Transmission Date: 20120403
  Serious: Yes (Hospitalization)
  Sender: FDA-Public Use
  Company Number: FR-ROCHE-774082

PATIENT
  Sex: Male

DRUGS (10)
  1. RIBAVIRIN [Suspect]
     Indication: HEPATITIS C
     Route: 048
  2. TRAMADOL HCL [Concomitant]
  3. NOVORAPID [Concomitant]
     Dosage: 8 UNIT  IN MORNING, 10 UNITS AT NOON AND 6 UNITS IN EVENING
  4. PEGINTERFERON ALFA-2A [Suspect]
     Indication: HEPATITIS C
     Route: 065
  5. LASIX [Concomitant]
  6. PROSCAR [Concomitant]
  7. MOVIPREP [Concomitant]
     Dosage: 1 SACHET
  8. POTASSIUM CHLORIDE [Concomitant]
  9. ALFUZOSIN HCL [Concomitant]
  10. ATACAND [Concomitant]

REACTIONS (2)
  - GINGIVAL BLEEDING [None]
  - THROMBOCYTOPENIA [None]
